FAERS Safety Report 4498362-2 (Version None)
Quarter: 2004Q4

REPORT INFORMATION
  Report Type: 
  Country: None (occurrence: None)
  Receive Date: 20041105
  Receipt Date: 20041014
  Transmission Date: 20050328
  Serious: Yes (Hospitalization)
  Sender: FDA-Public Use
  Company Number: 6011118

PATIENT
  Age: 75 Year
  Sex: Male

DRUGS (6)
  1. BISOPROLOL FUMARATE [Suspect]
     Indication: CARDIAC FAILURE CONGESTIVE
     Dosage: 10 MG ORAL
     Route: 048
     Dates: start: 20030910
  2. ENALAPRIL MALEATE [Suspect]
     Indication: CARDIAC FAILURE CONGESTIVE
     Dosage: 20 MG ORAL
     Route: 048
     Dates: start: 20040317
  3. DIGOXIN [Concomitant]
  4. TICLOPIDINE (TICLOPIDINE) [Concomitant]
  5. MONOSAN (ISOSORBIDE MONONITRATE) [Concomitant]
  6. FUROSEMIDE [Concomitant]

REACTIONS (5)
  - BRADYCARDIA [None]
  - CARDIAC FIBRILLATION [None]
  - CEREBRAL DISORDER [None]
  - HYPOPERFUSION [None]
  - ISCHAEMIC STROKE [None]
